FAERS Safety Report 8193036-9 (Version None)
Quarter: 2012Q1

REPORT INFORMATION
  Report Type: 
  Country: None (occurrence: None)
  Receive Date: 20120221
  Receipt Date: 20120110
  Transmission Date: 20120608
  Serious: Yes (Other)
  Sender: FDA-Public Use
  Company Number: PHEH2011US05867

PATIENT
  Age: 51 Year
  Sex: Male

DRUGS (5)
  1. PREDNISONE TAB [Concomitant]
  2. PROGRAF [Concomitant]
  3. ZORTRESS [Suspect]
     Indication: RENAL FAILURE
     Dosage: 1.25 MG, BID, ORAL
     Route: 048
     Dates: start: 20110610
  4. ZORTRESS [Suspect]
     Indication: LIVER TRANSPLANT
     Dosage: 1.25 MG, BID, ORAL
     Route: 048
     Dates: start: 20110610
  5. MYFORTIC [Concomitant]

REACTIONS (3)
  - LIVER FUNCTION TEST ABNORMAL [None]
  - BLOOD GLUCOSE INCREASED [None]
  - LIVER TRANSPLANT REJECTION [None]
